FAERS Safety Report 8263351-9 (Version None)
Quarter: 2012Q2

REPORT INFORMATION
  Report Type: 
  Country: None (occurrence: None)
  Receive Date: 20120405
  Receipt Date: 20120326
  Transmission Date: 20120825
  Serious: Yes (Other)
  Sender: FDA-Public Use
  Company Number: AU-SANOFI-AVENTIS-2012SA021165

PATIENT
  Age: 50 Year
  Sex: Male

DRUGS (8)
  1. OXALIPLATIN [Suspect]
     Route: 042
  2. CAPECITABINE [Suspect]
     Route: 048
  3. BEVACIZUMAB [Suspect]
     Route: 042
  4. BEVACIZUMAB [Suspect]
     Route: 042
  5. OXALIPLATIN [Suspect]
     Route: 042
  6. CAPECITABINE [Suspect]
     Dosage: RECEIVED FOR 14 DAYS, GIVEN EVERY 3 WEEKS
     Route: 048
  7. ONDANSETRON [Concomitant]
  8. DEXAMETHASONE [Concomitant]

REACTIONS (8)
  - RETINAL VEIN THROMBOSIS [None]
  - RETINAL VASCULAR DISORDER [None]
  - PUPILLARY REFLEX IMPAIRED [None]
  - VISION BLURRED [None]
  - BLINDNESS [None]
  - PAPILLOEDEMA [None]
  - RETINAL HAEMORRHAGE [None]
  - MACULAR OEDEMA [None]
